FAERS Safety Report 19069921 (Version 3)
Quarter: 2021Q3

REPORT INFORMATION
  Report Type: Spontaneous
  Country: CA (occurrence: CA)
  Receive Date: 20210329
  Receipt Date: 20210803
  Transmission Date: 20211014
  Serious: Yes (Death, Other)
  Sender: FDA-Public Use
  Company Number: US-JACOBUS PHARMACEUTICAL COMPANY, INC.-2108555

PATIENT
  Age: 67 Year
  Sex: Female

DRUGS (1)
  1. RUZURGI [Suspect]
     Active Substance: AMIFAMPRIDINE
     Indication: MYASTHENIC SYNDROME
     Route: 048
     Dates: start: 202006

REACTIONS (5)
  - Asthenia [Not Recovered/Not Resolved]
  - Euthanasia [Fatal]
  - Death [Fatal]
  - Tremor [Recovered/Resolved]
  - Secondary cerebellar degeneration [Not Recovered/Not Resolved]

NARRATIVE: CASE EVENT DATE: 20210617
